FAERS Safety Report 5467362-8 (Version None)
Quarter: 2007Q3

REPORT INFORMATION
  Report Type: 
  Country: None (occurrence: None)
  Receive Date: 20070925
  Receipt Date: 20070920
  Transmission Date: 20080115
  Serious: Yes (Death, Other)
  Sender: FDA-Public Use
  Company Number: US-ASTRAZENECA-2006UW12071

PATIENT
  Age: 14470 Day
  Sex: Female
  Weight: 95.5 kg

DRUGS (8)
  1. SEROQUEL [Suspect]
     Indication: SCHIZOPHRENIA
     Route: 048
     Dates: start: 19990101, end: 20061001
  2. SEROQUEL [Suspect]
     Indication: BIPOLAR DISORDER
     Route: 048
     Dates: start: 19990101, end: 20061001
  3. SEROQUEL [Suspect]
     Indication: DEPRESSION
     Route: 048
     Dates: start: 19990101, end: 20061001
  4. HYDROXYZINE [Suspect]
  5. ZYPREXA [Suspect]
  6. ABILIFY [Concomitant]
  7. HALDOL [Concomitant]
  8. RISPERDAL [Concomitant]

REACTIONS (5)
  - ACCIDENTAL OVERDOSE [None]
  - DIABETES MELLITUS [None]
  - DIABETIC COMA [None]
  - DIABETIC KETOACIDOSIS [None]
  - DRUG TOXICITY [None]
